FAERS Safety Report 10183084 (Version 1)
Quarter: 2014Q2

REPORT INFORMATION
  Report Type: Spontaneous
  Country: US (occurrence: US)
  Receive Date: 20140520
  Receipt Date: 20140520
  Transmission Date: 20141212
  Serious: No
  Sender: FDA-Public Use
  Company Number: US-009507513-1405USA004056

PATIENT
  Age: 19 Year
  Sex: Female

DRUGS (1)
  1. NEXPLANON [Suspect]
     Indication: CONTRACEPTION
     Dosage: DOSE/FREQUENCY-SINGLE ROD
     Route: 059
     Dates: start: 20140404, end: 20140501

REACTIONS (4)
  - Vasospasm [Unknown]
  - Migraine [Unknown]
  - Anxiety [Unknown]
  - Headache [Unknown]
